FAERS Safety Report 24960737 (Version 1)
Quarter: 2025Q1

REPORT INFORMATION
  Report Type: Spontaneous
  Country: US (occurrence: None)
  Receive Date: 20250211
  Receipt Date: 20250211
  Transmission Date: 20250408
  Serious: Yes (Other)
  Sender: FDA-CTU
  Company Number: None

PATIENT
  Age: 44 Year
  Sex: Female
  Weight: 103.05 kg

DRUGS (1)
  1. VILAZODONE [Suspect]
     Active Substance: VILAZODONE

REACTIONS (3)
  - Headache [None]
  - Dyspnoea [None]
  - Urticaria [None]
